FAERS Safety Report 25697824 (Version 4)
Quarter: 2025Q3

REPORT INFORMATION
  Report Type: Spontaneous
  Country: US (occurrence: US)
  Receive Date: 20250819
  Receipt Date: 20250908
  Transmission Date: 20251021
  Serious: Yes (Other)
  Sender: ALEXION PHARMACEUTICALS
  Company Number: US-AstraZeneca-CH-00919523AP

PATIENT
  Sex: Female

DRUGS (1)
  1. SYMBICORT [Suspect]
     Active Substance: BUDESONIDE\FORMOTEROL FUMARATE DIHYDRATE
     Indication: Product used for unknown indication
     Route: 065

REACTIONS (12)
  - Choking [Unknown]
  - Device delivery system issue [Unknown]
  - Incorrect dose administered [Unknown]
  - Device use issue [Unknown]
  - Dyspnoea [Unknown]
  - Pulmonary mass [Unknown]
  - Drug ineffective [Unknown]
  - Asthma [Unknown]
  - Intentional device misuse [Unknown]
  - Wheezing [Unknown]
  - Feeling abnormal [Unknown]
  - Confusional state [Unknown]
